FAERS Safety Report 11724003 (Version 1)
Quarter: 2015Q4

REPORT INFORMATION
  Report Type: Spontaneous
  Country: US (occurrence: US)
  Receive Date: 20151111
  Receipt Date: 20151111
  Transmission Date: 20160304
  Serious: No
  Sender: FDA-Public Use
  Company Number: US-TEVA-607258USA

PATIENT
  Sex: Female

DRUGS (2)
  1. NUVIGIL [Suspect]
     Active Substance: ARMODAFINIL
     Dosage: 125 MILLIGRAM DAILY; ONE-HALF TABLET FOR 2 DAYS
  2. NUVIGIL [Suspect]
     Active Substance: ARMODAFINIL
     Dosage: 250 MILLIGRAM DAILY; THEN 1 TABLET DAILY

REACTIONS (2)
  - Product use issue [Unknown]
  - Somnolence [Unknown]
